FAERS Safety Report 5922646-1 (Version None)
Quarter: 2008Q3

REPORT INFORMATION
  Report Type: 
  Country: None (occurrence: None)
  Receive Date: 20080909
  Receipt Date: 20071126
  Transmission Date: 20090109
  Serious: Yes (Other)
  Sender: FDA-Public Use
  Company Number: 163-20785-06081357

PATIENT
  Age: 79 Year
  Sex: Male
  Weight: 58.9676 kg

DRUGS (11)
  1. THALOMID [Suspect]
     Indication: MULTIPLE MYELOMA
     Dosage: 100 MG, HS X4D, REPEAT Q 2 WKS, ORAL, 100 MG, 1 IN 1 D, ORAL
     Route: 048
     Dates: start: 20060404, end: 20060731
  2. THALOMID [Suspect]
     Indication: MULTIPLE MYELOMA
     Dosage: 100 MG, HS X4D, REPEAT Q 2 WKS, ORAL, 100 MG, 1 IN 1 D, ORAL
     Route: 048
     Dates: start: 20040301
  3. TENORMIN [Concomitant]
  4. COLACE (DUCUSATE SODIUM) [Concomitant]
  5. OMEPRAZOLE [Concomitant]
  6. COUMADIN [Concomitant]
  7. SENOKOT [Concomitant]
  8. TRAMADOL HCL [Concomitant]
  9. DURAGESIC (FENTANYL) (POULTICE OR PATCH) [Concomitant]
  10. DEXAMETHASONE TAB [Concomitant]
  11. LOVENOX [Concomitant]

REACTIONS (5)
  - CONSTIPATION [None]
  - DEEP VEIN THROMBOSIS [None]
  - DISEASE PROGRESSION [None]
  - MALAISE [None]
  - NEUROPATHY PERIPHERAL [None]
